FAERS Safety Report 19964283 (Version 1)
Quarter: 2021Q4

REPORT INFORMATION
  Report Type: Other
  Country: CA (occurrence: CA)
  Receive Date: 20211018
  Receipt Date: 20211018
  Transmission Date: 20220303
  Serious: Yes (Death, Hospitalization, Other)
  Sender: FDA-Public Use
  Company Number: CA-APOTEX-2021AP044274

PATIENT
  Age: 55 Year
  Sex: Female

DRUGS (1)
  1. ACETAMINOPHEN [Interacting]
     Active Substance: ACETAMINOPHEN
     Indication: Product used for unknown indication
     Dosage: UNK
     Route: 065

REACTIONS (4)
  - Overdose [Fatal]
  - Altered state of consciousness [Fatal]
  - Blood glucose increased [Fatal]
  - Drug-device interaction [Fatal]
